FAERS Safety Report 4870785-9 (Version None)
Quarter: 2006Q1

REPORT INFORMATION
  Report Type: 
  Country: None (occurrence: None)
  Receive Date: 20060103
  Receipt Date: 20050831
  Transmission Date: 20060701
  Serious: Yes (Death)
  Sender: FDA-Public Use
  Company Number: US-MERCK-0509USA00089

PATIENT
  Age: 66 Year
  Sex: Male
  Weight: 81 kg

DRUGS (10)
  1. VIOXX [Suspect]
     Indication: ARTHRITIS
     Route: 048
     Dates: start: 20020401
  2. HYDROCHLOROTHIAZIDE [Concomitant]
     Route: 048
  3. MECLIZINE [Concomitant]
     Route: 048
  4. POTASSIUM CHLORIDE [Concomitant]
     Route: 048
  5. VALIUM [Concomitant]
     Indication: DIZZINESS
     Route: 065
  6. TYLENOL [Concomitant]
     Route: 065
  7. DARVOCET-N 100 [Concomitant]
     Route: 065
  8. ADVAIR DISKUS 250/50 [Concomitant]
     Route: 065
  9. ATROVENT [Concomitant]
     Route: 065
  10. TRICOR [Concomitant]
     Indication: HYPERLIPIDAEMIA
     Route: 065

REACTIONS (5)
  - BACK PAIN [None]
  - ERECTILE DYSFUNCTION [None]
  - INSOMNIA [None]
  - MENIERE'S DISEASE [None]
  - MYOCARDIAL INFARCTION [None]
